FAERS Safety Report 9323339 (Version 1)
Quarter: 2013Q2

REPORT INFORMATION
  Report Type: Spontaneous
  Country: US (occurrence: US)
  Receive Date: 20130603
  Receipt Date: 20130603
  Transmission Date: 20140414
  Serious: No
  Sender: FDA-Public Use
  Company Number: US-B.I. PHARMACEUTICALS,INC./RIDGEFIELD-2013-BI-15163BP

PATIENT
  Sex: Female
  Weight: 56.7 kg

DRUGS (3)
  1. PRADAXA [Suspect]
  2. MULTIVITAMINES [Concomitant]
  3. DIGOXIN [Concomitant]
     Indication: CARDIOVASCULAR EVENT PROPHYLAXIS
     Dates: start: 201211

REACTIONS (2)
  - Urticaria [Recovered/Resolved with Sequelae]
  - Campbell de Morgan spots [Not Recovered/Not Resolved]
